FAERS Safety Report 4325906-3 (Version None)
Quarter: 2004Q1

REPORT INFORMATION
  Report Type: 
  Country: None (occurrence: None)
  Receive Date: 20040329
  Receipt Date: 20030113
  Transmission Date: 20041129
  Serious: Yes (Death, Other)
  Sender: FDA-Public Use
  Company Number: US-MERCK-0301USA01101

PATIENT
  Age: 57 Year
  Sex: Male
  Weight: 91 kg

DRUGS (35)
  1. ALBUTEROL AND IPRATROPIUM BROMIDE [Concomitant]
     Route: 055
  2. ASPIRIN [Concomitant]
     Indication: PROPHYLAXIS
     Route: 065
     Dates: start: 20000418
  3. LIPITOR [Concomitant]
     Indication: BLOOD CHOLESTEROL INCREASED
     Route: 065
     Dates: start: 19990101, end: 20000418
  4. BECONASE [Concomitant]
     Route: 065
  5. PULMICORT [Concomitant]
     Route: 055
  6. WELLBUTRIN [Concomitant]
     Indication: DEPRESSION
     Route: 065
     Dates: start: 19990101, end: 20000401
  7. WELLBUTRIN [Concomitant]
     Indication: ANXIETY DISORDER
     Route: 065
     Dates: start: 19990101, end: 20000401
  8. KLONOPIN [Concomitant]
     Indication: PANIC DISORDER
     Route: 065
     Dates: start: 19990101, end: 20000401
  9. KLONOPIN [Concomitant]
     Indication: ANXIETY
     Route: 065
     Dates: start: 19990101, end: 20000401
  10. PLAVIX [Concomitant]
     Route: 065
  11. ALLEGRA [Concomitant]
     Route: 065
  12. PROZAC [Concomitant]
     Route: 065
  13. LASIX [Concomitant]
     Indication: OEDEMA PERIPHERAL
     Route: 065
     Dates: start: 20000101
  14. ALDACTAZIDE [Concomitant]
     Indication: OEDEMA PERIPHERAL
     Route: 065
     Dates: start: 20000101
  15. ADVIL [Concomitant]
     Route: 065
     Dates: start: 19991017
  16. TOPROL-XL [Concomitant]
     Indication: HYPERTENSION
     Route: 065
     Dates: start: 20001101, end: 20010103
  17. TOPROL-XL [Concomitant]
     Indication: CARDIAC DISORDER
     Route: 065
     Dates: start: 20001101, end: 20010103
  18. LOPRESSOR [Concomitant]
     Indication: HYPERTENSION
     Route: 065
     Dates: start: 20001101, end: 20010103
  19. LOPRESSOR [Concomitant]
     Indication: CARDIAC DISORDER
     Route: 065
     Dates: start: 20001101, end: 20010103
  20. SINGULAIR [Concomitant]
     Route: 065
  21. NAPROXEN [Concomitant]
     Route: 065
  22. NITROGLYCERIN [Concomitant]
     Route: 061
  23. PRILOSEC [Concomitant]
     Route: 065
  24. POTASSIUM CHLORIDE [Concomitant]
     Route: 065
  25. INDERAL [Concomitant]
     Indication: HYPERTENSION
     Route: 065
     Dates: start: 20001101, end: 20010103
  26. INDERAL [Concomitant]
     Indication: CARDIAC DISORDER
     Route: 065
     Dates: start: 20001101, end: 20010103
  27. ALTACE [Concomitant]
     Indication: HYPERTENSION
     Route: 065
     Dates: start: 20000401, end: 20010103
  28. ALTACE [Concomitant]
     Indication: MYOCARDIAL INFARCTION
     Route: 065
     Dates: start: 20000401, end: 20010103
  29. VIOXX [Suspect]
     Indication: RHEUMATOID ARTHRITIS
     Route: 048
     Dates: start: 20000216, end: 20010103
  30. VIOXX [Suspect]
     Indication: PAIN
     Route: 048
     Dates: start: 20000216, end: 20010103
  31. SEREVENT [Concomitant]
     Route: 055
  32. ZOCOR [Concomitant]
     Indication: BLOOD CHOLESTEROL INCREASED
     Route: 065
     Dates: start: 19990101, end: 20000418
  33. HYTRIN [Concomitant]
     Indication: BENIGN PROSTATIC HYPERPLASIA
     Route: 065
     Dates: start: 20000101
  34. THEOPHYLLINE [Concomitant]
     Route: 065
     Dates: start: 19950101, end: 20010101
  35. DEMADEX [Concomitant]
     Indication: OEDEMA PERIPHERAL
     Route: 065
     Dates: start: 20000101

REACTIONS (6)
  - CARDIAC ARREST [None]
  - CARDIAC FAILURE CONGESTIVE [None]
  - GASTRIC ULCER [None]
  - MYOCARDIAL INFARCTION [None]
  - RENAL FAILURE [None]
  - SUDDEN DEATH [None]
